FAERS Safety Report 7689820-8 (Version None)
Quarter: 2011Q3

REPORT INFORMATION
  Report Type: 
  Country: None (occurrence: None)
  Receive Date: 20110818
  Receipt Date: 20110811
  Transmission Date: 20111222
  Serious: Yes (Hospitalization)
  Sender: FDA-Public Use
  Company Number: US-BIOGENIDEC-2011BI024250

PATIENT
  Age: 37 Year
  Sex: Female

DRUGS (24)
  1. FERROUS SULFATE TAB [Concomitant]
     Route: 048
  2. DETROL [Concomitant]
     Route: 048
  3. TRILEPTAL [Concomitant]
     Route: 048
  4. MEGACE [Concomitant]
     Route: 048
  5. ALLEGRA D 24 HOUR [Concomitant]
     Route: 048
  6. TRIMETHOBENZAMIDE HCL [Concomitant]
     Route: 048
  7. MORPHINE SULFATE [Concomitant]
     Route: 048
  8. LEVOTHROID [Concomitant]
     Route: 048
  9. SOMA [Concomitant]
     Route: 048
  10. TRIAMCINOLONE ACETONIDE [Concomitant]
     Route: 061
  11. TYSABRI [Suspect]
     Route: 042
     Dates: start: 20080417, end: 20090820
  12. XANAX [Concomitant]
     Route: 048
  13. CHROMAGEN FORTE [Concomitant]
     Route: 048
  14. PERCOCET [Concomitant]
     Route: 048
  15. RITALIN [Concomitant]
     Route: 048
  16. TYSABRI [Suspect]
     Indication: MULTIPLE SCLEROSIS
     Route: 042
     Dates: start: 20100330
  17. NEXIUM [Concomitant]
     Route: 048
  18. LIDODERM [Concomitant]
  19. LYRICA [Concomitant]
     Route: 048
  20. NAMENDA [Concomitant]
  21. ADVAIR DISKUS 100/50 [Concomitant]
     Route: 055
  22. PROAIR HFA [Concomitant]
     Route: 055
  23. NAMENDA [Concomitant]
     Route: 048
  24. SERTRALINE HYDROCHLORIDE [Concomitant]
     Route: 048

REACTIONS (9)
  - KIDNEY INFECTION [None]
  - APHAGIA [None]
  - ASTHENIA [None]
  - FATIGUE [None]
  - SEPSIS [None]
  - LUNG INFECTION [None]
  - ARTHRALGIA [None]
  - PAIN [None]
  - FLUID INTAKE REDUCED [None]
